FAERS Safety Report 13418060 (Version 4)
Quarter: 2017Q3

REPORT INFORMATION
  Report Type: Report from Study
  Country: US (occurrence: US)
  Receive Date: 20170406
  Receipt Date: 20170721
  Transmission Date: 20171127
  Serious: Yes (Other)
  Sender: FDA-Public Use
  Company Number: US-PFIZER INC-2017069224

PATIENT
  Age: 64 Year
  Sex: Male

DRUGS (1)
  1. SUTENT [Suspect]
     Active Substance: SUNITINIB MALATE
     Indication: METASTATIC RENAL CELL CARCINOMA
     Dosage: 37.5 MG, CYCLIC [DAILY FOR DAY 1-DAY 28 FOLLOWED BY 14 DAYS OFF, TO COMPLETE 42 DAYS OF ONE CYCLE]
     Route: 048
     Dates: start: 20170203

REACTIONS (22)
  - Bone marrow failure [Unknown]
  - Thrombocytopenia [Unknown]
  - Protein total decreased [Unknown]
  - Insomnia [Not Recovered/Not Resolved]
  - White blood cell count decreased [Unknown]
  - Haematocrit decreased [Unknown]
  - Dysgeusia [Not Recovered/Not Resolved]
  - Eructation [Unknown]
  - Fatigue [Recovering/Resolving]
  - Nasopharyngitis [Unknown]
  - Pruritus [Unknown]
  - Pain [Unknown]
  - Incision site pain [Unknown]
  - Diarrhoea [Not Recovered/Not Resolved]
  - Blood creatinine decreased [Unknown]
  - Blood urea decreased [Unknown]
  - Blood glucose fluctuation [Unknown]
  - Haemoglobin decreased [Unknown]
  - Platelet count decreased [Unknown]
  - Feeling cold [Unknown]
  - Hyperglycaemia [Recovering/Resolving]
  - Dyspepsia [Unknown]

NARRATIVE: CASE EVENT DATE: 20170223
